FAERS Safety Report 7733813-9 (Version None)
Quarter: 2011Q3

REPORT INFORMATION
  Report Type: 
  Country: None (occurrence: None)
  Receive Date: 20110902
  Receipt Date: 20110902
  Transmission Date: 20111222
  Serious: No
  Sender: FDA-Public Use
  Company Number: None

PATIENT
  Age: 62 Year
  Sex: Female
  Weight: 93.441 kg

DRUGS (1)
  1. JANUVIA [Suspect]
     Indication: OEDEMA
     Dosage: 100 MG 1 TIME
     Dates: start: 20110805

REACTIONS (4)
  - OEDEMA PERIPHERAL [None]
  - GAIT DISTURBANCE [None]
  - SENSORY DISTURBANCE [None]
  - FEAR [None]
